FAERS Safety Report 6374051-4 (Version None)
Quarter: 2009Q3

REPORT INFORMATION
  Report Type: 
  Country: None (occurrence: None)
  Receive Date: 20090924
  Receipt Date: 20090706
  Transmission Date: 20100115
  Serious: No
  Sender: FDA-Public Use
  Company Number: US-ASTRAZENECA-2009UW18665

PATIENT
  Age: 82 Year
  Sex: Female
  Weight: 54.4 kg

DRUGS (6)
  1. SEROQUEL [Suspect]
     Indication: SLEEP DISORDER
     Route: 048
     Dates: start: 20090705
  2. LIPITOR [Concomitant]
  3. COUMADIN [Concomitant]
  4. SERTRALINE HCL [Concomitant]
  5. SPIROLACTONE [Concomitant]
  6. DIGOXIN [Concomitant]

REACTIONS (4)
  - INSOMNIA [None]
  - PAIN IN EXTREMITY [None]
  - PALPITATIONS [None]
  - TREMOR [None]
